FAERS Safety Report 5572124-7 (Version None)
Quarter: 2007Q4

REPORT INFORMATION
  Report Type: 
  Country: None (occurrence: None)
  Receive Date: 20071221
  Receipt Date: 20071218
  Transmission Date: 20080405
  Serious: Yes (Hospitalization, Other)
  Sender: FDA-Public Use
  Company Number: FR-GILEAD-2007-0014717

PATIENT
  Age: 45 Year
  Sex: Female

DRUGS (5)
  1. EMTRIVA [Suspect]
     Indication: HIV INFECTION
     Route: 048
     Dates: start: 20040901
  2. ZIAGEN [Suspect]
     Indication: HIV INFECTION
     Route: 048
     Dates: start: 20040901
  3. ANSATIPINE [Suspect]
     Route: 048
     Dates: start: 20040901
  4. ZECLAR [Concomitant]
  5. STILNOX [Concomitant]

REACTIONS (2)
  - ARTHRALGIA [None]
  - FRACTURE [None]
